FAERS Safety Report 4674373-9 (Version None)
Quarter: 2005Q2

REPORT INFORMATION
  Report Type: 
  Country: None (occurrence: None)
  Receive Date: 20050524
  Receipt Date: 20050517
  Transmission Date: 20051028
  Serious: Yes (Other)
  Sender: FDA-Public Use
  Company Number: S05-USA-02390-01

PATIENT
  Age: 42 Year
  Sex: Male
  Weight: 46.7205 kg

DRUGS (7)
  1. CELEXA [Suspect]
     Indication: DEPRESSION
     Dosage: 20 MG BID PO
     Route: 048
     Dates: start: 20050301, end: 20050505
  2. CELEXA [Suspect]
     Indication: DEPRESSION
     Dosage: 20 MG QD PO
     Route: 048
     Dates: start: 20050506, end: 20050501
  3. CELEXA [Suspect]
     Indication: DEPRESSION
     Dates: start: 20050501, end: 20050513
  4. CELEXA [Suspect]
     Indication: DEPRESSION
     Dosage: 5 MG QD PO
     Route: 048
     Dates: start: 20050514, end: 20050516
  5. METHADONE HCL [Concomitant]
  6. ZOFRAN [Concomitant]
  7. METOCLOPRAMIDE [Concomitant]

REACTIONS (10)
  - AGITATION [None]
  - CONFUSIONAL STATE [None]
  - DIARRHOEA [None]
  - DRUG INEFFECTIVE [None]
  - FUNGAL INFECTION [None]
  - HALLUCINATION, VISUAL [None]
  - MENTAL STATUS CHANGES [None]
  - MYDRIASIS [None]
  - PYREXIA [None]
  - TREMOR [None]
